FAERS Safety Report 7316381-5 (Version None)
Quarter: 2011Q1

REPORT INFORMATION
  Report Type: 
  Country: None (occurrence: None)
  Receive Date: 20110225
  Receipt Date: 20110211
  Transmission Date: 20110831
  Serious: Yes (Other)
  Sender: FDA-Public Use
  Company Number: US-CELGENEUS-163-21880-11021690

PATIENT
  Sex: Male
  Weight: 97.61 kg

DRUGS (12)
  1. GLYBURIDE [Concomitant]
     Route: 065
  2. POTASSIUM [Concomitant]
     Route: 065
  3. METFORMIN HCL [Concomitant]
     Route: 065
  4. OXYCONTIN [Concomitant]
     Route: 065
  5. REVLIMID [Suspect]
     Route: 048
     Dates: start: 20101019
  6. ASPIRIN [Concomitant]
     Route: 065
  7. ATENOLOL [Concomitant]
     Route: 065
  8. HYDROCODONE BITARTRATE [Concomitant]
     Route: 065
  9. VYTORIN [Concomitant]
     Route: 065
  10. LOSARTAN POTASSIUM [Concomitant]
     Route: 065
  11. REVLIMID [Suspect]
     Indication: MULTIPLE MYELOMA
     Route: 048
     Dates: start: 20100605, end: 20101001
  12. AREDIA [Concomitant]
     Route: 065

REACTIONS (1)
  - SKIN DISCOLOURATION [None]
